FAERS Safety Report 25146323 (Version 4)
Quarter: 2025Q2

REPORT INFORMATION
  Report Type: Report from Study
  Country: AR (occurrence: AR)
  Receive Date: 20250401
  Receipt Date: 20250603
  Transmission Date: 20250716
  Serious: Yes (Other)
  Sender: NOVARTIS
  Company Number: AR-002147023-NVSC2025AR030622

PATIENT
  Age: 38 Year
  Sex: Female

DRUGS (5)
  1. KESIMPTA [Suspect]
     Active Substance: OFATUMUMAB
     Indication: Multiple sclerosis
     Route: 065
     Dates: start: 20240730
  2. KESIMPTA [Suspect]
     Active Substance: OFATUMUMAB
     Route: 058
  3. KESIMPTA [Suspect]
     Active Substance: OFATUMUMAB
     Route: 065
     Dates: start: 202501
  4. KESIMPTA [Suspect]
     Active Substance: OFATUMUMAB
     Dosage: 20 MG, QMO
     Route: 065
     Dates: start: 20250316
  5. KESIMPTA [Suspect]
     Active Substance: OFATUMUMAB
     Route: 065
     Dates: start: 20250317

REACTIONS (15)
  - Demyelination [Unknown]
  - Multiple sclerosis [Unknown]
  - Malaise [Unknown]
  - Fatigue [Unknown]
  - Aphasia [Unknown]
  - Inflammation [Unknown]
  - Nervousness [Unknown]
  - Oral pruritus [Recovered/Resolved]
  - Nasal pruritus [Recovered/Resolved]
  - Influenza like illness [Recovered/Resolved]
  - Secretion discharge [Recovered/Resolved]
  - Nasal discomfort [Recovered/Resolved]
  - Alopecia [Not Recovered/Not Resolved]
  - Drug ineffective [Unknown]
  - Inappropriate schedule of product administration [Unknown]

NARRATIVE: CASE EVENT DATE: 20250219
